FAERS Safety Report 8554097-8 (Version None)
Quarter: 2012Q3

REPORT INFORMATION
  Report Type: 
  Country: None (occurrence: None)
  Receive Date: 20120731
  Receipt Date: 20120725
  Transmission Date: 20120928
  Serious: Yes (Hospitalization, Other)
  Sender: FDA-Public Use
  Company Number: PHHY2012CA005283

PATIENT
  Sex: Female

DRUGS (5)
  1. LYRICA [Concomitant]
  2. GILENYA [Suspect]
     Indication: RELAPSING-REMITTING MULTIPLE SCLEROSIS
     Dosage: 0.5 MG, QD
     Route: 048
     Dates: start: 20120119
  3. GILENYA [Suspect]
     Dosage: 0.5 MG, BID ( PATIENT TOOK GILENYA IN THE MORNING AS USUAL, HOWEVER SHE TOOK IT AGAIN IN THE EVENIN)
     Route: 048
     Dates: start: 20120204
  4. MODAFINIL [Concomitant]
  5. GILENYA [Suspect]
     Dosage: 0.5 MG, QD
     Route: 048

REACTIONS (10)
  - ACCIDENTAL OVERDOSE [None]
  - NASOPHARYNGITIS [None]
  - HEADACHE [None]
  - PALPITATIONS [None]
  - INTRAOCULAR MELANOMA [None]
  - DRY SKIN [None]
  - DIZZINESS [None]
  - BLOOD PRESSURE INCREASED [None]
  - WEIGHT DECREASED [None]
  - OROPHARYNGEAL PAIN [None]
